FAERS Safety Report 16905473 (Version 1)
Quarter: 2019Q4

REPORT INFORMATION
  Report Type: Spontaneous
  Country: US (occurrence: US)
  Receive Date: 20191010
  Receipt Date: 20191010
  Transmission Date: 20200122
  Serious: Yes (Hospitalization, Other)
  Sender: FDA-Public Use
  Company Number: US-CELGENEUS-USA-20191003237

PATIENT
  Age: 33 Year
  Sex: Female
  Weight: 71.8 kg

DRUGS (21)
  1. ABRAXANE [Suspect]
     Active Substance: PACLITAXEL
     Indication: BREAST CANCER
     Dosage: 190 MILLIGRAM
     Route: 042
     Dates: start: 20190604, end: 20190806
  2. DOXORUBICIN [Suspect]
     Active Substance: DOXORUBICIN
     Indication: BREAST CANCER
     Dosage: 111.6 MILLIGRAM
     Route: 042
     Dates: start: 20190820
  3. LOPERAMIDE [Concomitant]
     Active Substance: LOPERAMIDE
     Indication: DIARRHOEA
     Dosage: 2 MILLIGRAM
     Route: 048
     Dates: start: 20190502
  4. CYCLOPHOSPHAMIDE. [Suspect]
     Active Substance: CYCLOPHOSPHAMIDE
     Indication: BREAST CANCER
     Dosage: 1116 MILLIGRAM
     Route: 042
     Dates: start: 20190820
  5. ONDANSETRON [Concomitant]
     Active Substance: ONDANSETRON
     Indication: NAUSEA
     Dosage: 8 MG
     Route: 048
     Dates: start: 20190502
  6. PROCHLORPERAZINE. [Concomitant]
     Active Substance: PROCHLORPERAZINE
     Indication: NAUSEA
     Dosage: 8 MG
     Route: 048
     Dates: start: 20190502
  7. LORAZEPAM. [Concomitant]
     Active Substance: LORAZEPAM
     Indication: ANXIETY
     Dosage: 10 MG
     Route: 048
     Dates: start: 20190502
  8. DURVALUMAB. [Suspect]
     Active Substance: DURVALUMAB
     Indication: BREAST CANCER
     Dosage: 1500 MILLIGRAM
     Route: 042
     Dates: start: 20190506, end: 20190619
  9. OLAPARIB. [Suspect]
     Active Substance: OLAPARIB
     Indication: BREAST CANCER
     Dosage: 200 MILLIGRAM
     Route: 048
     Dates: start: 20190506, end: 20190611
  10. PACLITAXEL. [Suspect]
     Active Substance: PACLITAXEL
     Indication: BREAST CANCER
     Dosage: 150 MILLIGRAM
     Route: 048
     Dates: start: 20190506, end: 20190604
  11. VALACYCLOVIR [Concomitant]
     Active Substance: VALACYCLOVIR HYDROCHLORIDE
     Indication: PRODUCT USED FOR UNKNOWN INDICATION
     Dosage: 1 MILLIGRAM
     Route: 048
     Dates: start: 20190520
  12. OLANZAPINE. [Concomitant]
     Active Substance: OLANZAPINE
     Indication: PRODUCT USED FOR UNKNOWN INDICATION
     Dosage: 2.5 MG
     Route: 048
     Dates: start: 20190625
  13. LORATADINE. [Concomitant]
     Active Substance: LORATADINE
     Indication: DIARRHOEA
     Dosage: 10 MG
     Route: 048
     Dates: start: 20190820
  14. MORPHINE [Concomitant]
     Active Substance: MORPHINE
     Indication: PAIN
     Dosage: 10 MG
     Route: 048
     Dates: start: 20190502
  15. HYOSCYAMINE. [Concomitant]
     Active Substance: HYOSCYAMINE
     Indication: MUSCLE SPASMS
     Dosage: .125 MILLIGRAM
     Route: 048
     Dates: start: 20190913
  16. LIDOCAINE. [Concomitant]
     Active Substance: LIDOCAINE
     Indication: MUCOSAL INFLAMMATION
     Dosage: 5 MILLILITER
     Route: 048
     Dates: start: 20190502
  17. PREDNISONE. [Suspect]
     Active Substance: PREDNISONE
     Indication: COLITIS
     Dosage: 5 MILLIGRAM
     Route: 048
     Dates: start: 20190917
  18. ONDANSETRON [Concomitant]
     Active Substance: ONDANSETRON
     Indication: NAUSEA
     Dosage: 10 ML OF 4 MG/5 ML SOL
     Route: 048
     Dates: start: 20190630
  19. LIDOCAINE-PRILOCAINE [Concomitant]
     Active Substance: LIDOCAINE\PRILOCAINE
     Indication: MUCOSAL INFLAMMATION
     Dosage: 2.5 PERCENT
     Route: 061
     Dates: start: 20190502
  20. DEXAMETHASONE. [Concomitant]
     Active Substance: DEXAMETHASONE
     Indication: PRODUCT USED FOR UNKNOWN INDICATION
     Dosage: 5 MG/5 ML
     Route: 048
     Dates: start: 20190520
  21. NAPROXEN SODIUM. [Concomitant]
     Active Substance: NAPROXEN SODIUM
     Indication: PRODUCT USED FOR UNKNOWN INDICATION
     Dosage: 220 MG
     Route: 048

REACTIONS (1)
  - Febrile neutropenia [Recovered/Resolved]

NARRATIVE: CASE EVENT DATE: 20190925
